FAERS Safety Report 16570033 (Version 2)
Quarter: 2019Q3

REPORT INFORMATION
  Report Type: Spontaneous
  Country: CN (occurrence: CN)
  Receive Date: 20190715
  Receipt Date: 20190829
  Transmission Date: 20191004
  Serious: Yes (Hospitalization)
  Sender: FDA-Public Use
  Company Number: PHHY2019CN158635

PATIENT
  Age: 30 Year
  Sex: Male

DRUGS (3)
  1. ZOLEDRONATE [Suspect]
     Active Substance: ZOLEDRONIC ACID
     Indication: PROPHYLAXIS
  2. ZOLEDRONATE [Suspect]
     Active Substance: ZOLEDRONIC ACID
     Indication: METASTASES TO BONE
     Dosage: UNK
     Route: 042
     Dates: start: 201303, end: 201505
  3. CRIZOTINIB [Concomitant]
     Active Substance: CRIZOTINIB
     Indication: NON-SMALL CELL LUNG CANCER
     Dosage: TWO TIMES A DAY
     Route: 048

REACTIONS (23)
  - Gingival pain [Unknown]
  - Breath odour [Unknown]
  - Product use in unapproved indication [Unknown]
  - Facial asymmetry [Unknown]
  - Osteomyelitis bacterial [Recovering/Resolving]
  - Purulent discharge [Unknown]
  - Inflammation [Recovered/Resolved]
  - Osteonecrosis of jaw [Recovered/Resolved]
  - Swelling face [Unknown]
  - Osteomyelitis [Unknown]
  - Impaired healing [Recovering/Resolving]
  - Exposed bone in jaw [Recovering/Resolving]
  - Swelling [Unknown]
  - Pain in extremity [Unknown]
  - Arthralgia [Recovered/Resolved]
  - Impaired healing [Recovered/Resolved]
  - Ulcer [Recovered/Resolved]
  - Loose tooth [Recovering/Resolving]
  - Gingival hypertrophy [Unknown]
  - Pain in jaw [Unknown]
  - Joint swelling [Unknown]
  - Erythema [Unknown]
  - Osteonecrosis [Recovered/Resolved]

NARRATIVE: CASE EVENT DATE: 201605
